FAERS Safety Report 8145088-X (Version None)
Quarter: 2012Q1

REPORT INFORMATION
  Report Type: 
  Country: None (occurrence: None)
  Receive Date: 20120217
  Receipt Date: 20120212
  Transmission Date: 20120608
  Serious: Yes (Death, Other)
  Sender: FDA-Public Use
  Company Number: PHHY2011JP91162

PATIENT

DRUGS (2)
  1. CYCLOSPORINE [Suspect]
     Indication: STEM CELL TRANSPLANT
     Dosage: UNK UKN, UNK
  2. CYCLOSPORINE [Suspect]
     Indication: PROPHYLAXIS AGAINST GRAFT VERSUS HOST DISEASE

REACTIONS (7)
  - BLOOD URINE PRESENT [None]
  - HAEMATURIA [None]
  - BLADDER IRRITATION [None]
  - INFECTION [None]
  - VIRAL HAEMORRHAGIC CYSTITIS [None]
  - BK VIRUS INFECTION [None]
  - CYTOMEGALOVIRUS INFECTION [None]
